FAERS Safety Report 22643067 (Version 1)
Quarter: 2023Q2

REPORT INFORMATION
  Report Type: Spontaneous
  Country: RU (occurrence: None)
  Receive Date: 20230627
  Receipt Date: 20230627
  Transmission Date: 20230722
  Serious: Yes (Other)
  Sender: FDA-Public Use
  Company Number: RU-ROCHE-3373995

PATIENT
  Age: 2 Year
  Sex: Female

DRUGS (2)
  1. PERTUZUMAB [Suspect]
     Active Substance: PERTUZUMAB
     Indication: Product used for unknown indication
     Route: 065
  2. TRASTUZUMAB [Suspect]
     Active Substance: TRASTUZUMAB
     Indication: Product used for unknown indication
     Route: 065

REACTIONS (6)
  - Pneumonia [Unknown]
  - Hydrothorax [Unknown]
  - Ejection fraction decreased [Unknown]
  - Lymphadenopathy [Unknown]
  - COVID-19 [Unknown]
  - Product dose omission issue [Unknown]
